FAERS Safety Report 7255888-6 (Version None)
Quarter: 2011Q1

REPORT INFORMATION
  Report Type: 
  Country: None (occurrence: None)
  Receive Date: 20110129
  Receipt Date: 20100506
  Transmission Date: 20110831
  Serious: No
  Sender: FDA-Public Use
  Company Number: US-ABBOTT-10P-163-0643599-00

PATIENT
  Sex: Female
  Weight: 46.762 kg

DRUGS (5)
  1. PREDNISONE [Concomitant]
     Indication: RHEUMATOID ARTHRITIS
  2. ARAVA [Concomitant]
     Indication: RHEUMATOID ARTHRITIS
  3. SAVELLA [Concomitant]
     Indication: FIBROMYALGIA
  4. HUMIRA [Suspect]
     Indication: RHEUMATOID ARTHRITIS
     Route: 058
     Dates: start: 20091001
  5. HYDROCODONE [Concomitant]
     Indication: RHEUMATOID ARTHRITIS

REACTIONS (14)
  - SKIN EXFOLIATION [None]
  - ERYTHEMA [None]
  - ACNE [None]
  - INFECTED BITES [None]
  - PHARYNGITIS [None]
  - RASH [None]
  - FATIGUE [None]
  - RASH PRURITIC [None]
  - ARTHROPOD BITE [None]
  - SKIN INFECTION [None]
  - PAIN [None]
  - PERITONSILLAR ABSCESS [None]
  - RASH ERYTHEMATOUS [None]
  - LOCALISED INFECTION [None]
